FAERS Safety Report 5097899-5 (Version None)
Quarter: 2006Q3

REPORT INFORMATION
  Report Type: 
  Country: None (occurrence: None)
  Receive Date: 20060905
  Receipt Date: 20060905
  Transmission Date: 20061208
  Serious: Yes (Other)
  Sender: FDA-Public Use
  Company Number: None

PATIENT
  Age: 51 Year
  Sex: Male
  Weight: 111.1 kg

DRUGS (2)
  1. INTERFERON 6 MILLION UNITS/METER SCHERRING PLOUGH [Suspect]
     Indication: METASTATIC MALIGNANT MELANOMA
     Dosage: 14 MILLION UNITS  3X/WEEK SQ
     Route: 058
     Dates: start: 20060404, end: 20060814
  2. AZACITIDINE 75 MG /METER SQUARE [Suspect]
     Indication: METASTATIC MALIGNANT MELANOMA
     Dosage: 175 MG 3 DOSES Q 2 WKS SQ
     Route: 058
     Dates: start: 20060328, end: 20060727

REACTIONS (3)
  - IRITIS [None]
  - OCULAR HYPERAEMIA [None]
  - VISION BLURRED [None]
